FAERS Safety Report 6900503-1 (Version None)
Quarter: 2010Q3

REPORT INFORMATION
  Report Type: 
  Country: None (occurrence: None)
  Receive Date: 20100730
  Receipt Date: 20100726
  Transmission Date: 20110219
  Serious: Yes (Hospitalization)
  Sender: FDA-Public Use
  Company Number: 015190

PATIENT
  Sex: Male
  Weight: 73 kg

DRUGS (9)
  1. CERTOLIZUMAB PEGOL (CERTOLIZUMAB PEGOL) [Suspect]
     Indication: RHEUMATOID ARTHRITIS
     Dosage: 200 MG 2X/MONTH, NBR OF DOSES:17 SUBCUTANEOUS
     Route: 058
     Dates: start: 20091029, end: 20100720
  2. FOLIC ACID [Concomitant]
  3. TETRAZEPAM [Concomitant]
  4. TOLPERISONE [Concomitant]
  5. DICLORATIO [Concomitant]
  6. METHYLPREDNISOLONUM [Concomitant]
  7. BISOCARD [Concomitant]
  8. ACARD [Concomitant]
  9. POLPRAZOL [Concomitant]

REACTIONS (1)
  - LUNG NEOPLASM [None]
